FAERS Safety Report 15158917 (Version 3)
Quarter: 2018Q3

REPORT INFORMATION
  Report Type: Report from Study
  Country: CA (occurrence: CA)
  Receive Date: 20180718
  Receipt Date: 20180920
  Transmission Date: 20181010
  Serious: No
  Sender: FDA-Public Use
  Company Number: PHHY2018CA048545

PATIENT
  Sex: Male

DRUGS (1)
  1. JADENU [Suspect]
     Active Substance: DEFERASIROX
     Indication: THALASSAEMIA
     Dosage: 90 MG, QD
     Route: 048
     Dates: start: 20180612

REACTIONS (2)
  - Drug hypersensitivity [Recovering/Resolving]
  - Malaise [Not Recovered/Not Resolved]
